FAERS Safety Report 21052012 (Version 1)
Quarter: 2022Q3

REPORT INFORMATION
  Report Type: Spontaneous
  Country: US (occurrence: None)
  Receive Date: 20220706
  Receipt Date: 20220706
  Transmission Date: 20221027
  Serious: No
  Sender: FDA-Public Use
  Company Number: None

PATIENT
  Age: 40 Year
  Sex: Male
  Weight: 138.15 kg

DRUGS (1)
  1. BEBTELOVIMAB [Suspect]
     Active Substance: BEBTELOVIMAB
     Indication: COVID-19 treatment
     Dates: start: 20220705, end: 20220705

REACTIONS (4)
  - Back pain [None]
  - Painful respiration [None]
  - Diarrhoea [None]
  - Movement disorder [None]

NARRATIVE: CASE EVENT DATE: 20220705
